FAERS Safety Report 8989698 (Version 4)
Quarter: 2013Q3

REPORT INFORMATION
  Report Type: Report from Study
  Country: MX (occurrence: MX)
  Receive Date: 20121227
  Receipt Date: 20130718
  Transmission Date: 20140515
  Serious: Yes (Death, Hospitalization)
  Sender: FDA-Public Use
  Company Number: MX-BRISTOL-MYERS SQUIBB COMPANY-17241969

PATIENT
  Age: 49 Year
  Sex: Male
  Weight: 52.5 kg

DRUGS (3)
  1. ERBITUX [Suspect]
     Indication: SQUAMOUS CELL CARCINOMA OF HEAD AND NECK
     Dosage: LODING DOSE 400MG/M2 START WITH 06DEC2012 THEN START WITH 250MG/M2:6DEC2012;STARTED ON 03JAN13
     Route: 042
     Dates: start: 20121206
  2. CISPLATIN [Suspect]
     Indication: SQUAMOUS CELL CARCINOMA OF HEAD AND NECK
     Dosage: ON D 1
     Route: 042
     Dates: start: 20121206
  3. 5-FLUOROURACIL [Suspect]
     Indication: SQUAMOUS CELL CARCINOMA OF HEAD AND NECK
     Dosage: ON D1-4; LAST DOSE: 10DEC2012
     Route: 042
     Dates: start: 20121206

REACTIONS (2)
  - Malignant neoplasm progression [Fatal]
  - Hyponatraemia [Recovered/Resolved]
